FAERS Safety Report 5956846-1 (Version None)
Quarter: 2008Q4

REPORT INFORMATION
  Report Type: 
  Country: None (occurrence: None)
  Receive Date: 20081114
  Receipt Date: 20081114
  Transmission Date: 20090506
  Serious: Yes (Other)
  Sender: FDA-Public Use
  Company Number: None

PATIENT
  Sex: Male
  Weight: 91.6266 kg

DRUGS (2)
  1. VERAPAMIL [Suspect]
     Indication: HYPERTENSION
     Dosage: 1 TABLET PER DAY PO
     Route: 048
     Dates: start: 20080215, end: 20081113
  2. VERAPAMIL [Suspect]
     Indication: MIGRAINE
     Dosage: 1 TABLET PER DAY PO
     Route: 048
     Dates: start: 20080215, end: 20081113

REACTIONS (6)
  - BLOOD PRESSURE DECREASED [None]
  - BODY TEMPERATURE INCREASED [None]
  - DEHYDRATION [None]
  - DYSSTASIA [None]
  - FALL [None]
  - INFLUENZA LIKE ILLNESS [None]
